FAERS Safety Report 14996240 (Version 1)
Quarter: 2018Q2

REPORT INFORMATION
  Report Type: Spontaneous
  Country: SE (occurrence: SE)
  Receive Date: 20180611
  Receipt Date: 20180611
  Transmission Date: 20180711
  Serious: Yes (Hospitalization)
  Sender: FDA-Public Use
  Company Number: SE-009507513-1806SWE002808

PATIENT
  Age: 88 Year
  Sex: Female

DRUGS (9)
  1. METOLAZONE. [Suspect]
     Active Substance: METOLAZONE
     Dosage: UNK
  2. SIMVASTATIN. [Suspect]
     Active Substance: SIMVASTATIN
     Dosage: UNK
     Route: 048
  3. OXYCODONE [Concomitant]
     Active Substance: OXYCODONE
     Dosage: UNK
  4. ALVEDON [Concomitant]
     Active Substance: ACETAMINOPHEN
     Dosage: UNK
  5. CANDESARTAN. [Suspect]
     Active Substance: CANDESARTAN
     Dosage: UNK
  6. LEVAXIN [Concomitant]
     Active Substance: LEVOTHYROXINE SODIUM
  7. WARAN [Concomitant]
     Active Substance: WARFARIN SODIUM
     Dosage: UNK
  8. ALLOPURINOL. [Concomitant]
     Active Substance: ALLOPURINOL
     Dosage: UNK
  9. GLYTRIN [Concomitant]
     Dosage: UNK; 0.4MG/DOS SUBLINGUAL SPRAY

REACTIONS (1)
  - Renal impairment [Not Recovered/Not Resolved]

NARRATIVE: CASE EVENT DATE: 20180425
